FAERS Safety Report 7146516-9 (Version None)
Quarter: 2010Q4

REPORT INFORMATION
  Report Type: 
  Country: None (occurrence: None)
  Receive Date: 20101208
  Receipt Date: 20101202
  Transmission Date: 20110411
  Serious: Yes (Life-Threatening, Hospitalization, Other)
  Sender: FDA-Public Use
  Company Number: DE-BAXTER-2010BH020992

PATIENT
  Age: 59 Year
  Sex: Male

DRUGS (7)
  1. CYCLOPHOSPHAMIDE [Suspect]
     Indication: POLYMYALGIA RHEUMATICA
     Route: 065
     Dates: start: 20000101, end: 20010101
  2. ETANERCEPT [Suspect]
     Indication: POLYMYALGIA RHEUMATICA
     Route: 058
     Dates: start: 20100802, end: 20100101
  3. ETANERCEPT [Suspect]
     Indication: VASCULITIS
     Route: 058
     Dates: start: 20100802, end: 20100101
  4. PREDNISOLONE [Concomitant]
     Indication: PRODUCT USED FOR UNKNOWN INDICATION
     Route: 065
  5. ACETYLSALICYLIC ACID [Concomitant]
     Indication: PRODUCT USED FOR UNKNOWN INDICATION
     Route: 065
  6. RAMIPRIL [Concomitant]
     Indication: PRODUCT USED FOR UNKNOWN INDICATION
     Route: 065
  7. GLUCOCORTICOIDS [Concomitant]
     Indication: PRODUCT USED FOR UNKNOWN INDICATION
     Route: 065

REACTIONS (6)
  - ANAEMIA [None]
  - BONE MARROW FAILURE [None]
  - ESCHERICHIA INFECTION [None]
  - HAEMOLYSIS [None]
  - LEUKOPENIA [None]
  - UROSEPSIS [None]
